FAERS Safety Report 7803005-3 (Version None)
Quarter: 2011Q4

REPORT INFORMATION
  Report Type: 
  Country: None (occurrence: None)
  Receive Date: 20111007
  Receipt Date: 20110926
  Transmission Date: 20120403
  Serious: Yes (Hospitalization, Other)
  Sender: FDA-Public Use
  Company Number: JP-BRISTOL-MYERS SQUIBB COMPANY-15982218

PATIENT
  Age: 61 Year
  Sex: Male

DRUGS (9)
  1. LASIX [Concomitant]
     Indication: RENAL FAILURE
     Route: 048
  2. METFORMIN HCL [Concomitant]
     Indication: DIABETES MELLITUS
     Route: 048
     Dates: end: 20110515
  3. ACTOS [Concomitant]
     Indication: DIABETES MELLITUS
     Route: 048
  4. METFORMIN HCL [Concomitant]
     Route: 048
     Dates: start: 20020226, end: 20050925
  5. METFORMIN HCL [Suspect]
     Indication: DIABETES MELLITUS
     Route: 048
     Dates: start: 20110516, end: 20110630
  6. CRESTOR [Concomitant]
     Indication: HYPERCHOLESTEROLAEMIA
     Route: 048
  7. ASPIRIN [Concomitant]
     Indication: ANGINA PECTORIS
     Dosage: NICHIASPIRIN
     Route: 048
  8. NOVOLIN 50R [Concomitant]
     Indication: DIABETES MELLITUS
     Dosage: 8/MORNING AND 4/EVENING
     Route: 058
  9. LEVOTHYROXINE SODIUM [Concomitant]
     Indication: HYPOTHYROIDISM
     Route: 048

REACTIONS (2)
  - LACTIC ACIDOSIS [None]
  - METABOLIC ENCEPHALOPATHY [None]
